FAERS Safety Report 24122909 (Version 1)
Quarter: 2024Q3

REPORT INFORMATION
  Report Type: Spontaneous
  Country: FR (occurrence: FR)
  Receive Date: 20240723
  Receipt Date: 20240723
  Transmission Date: 20241017
  Serious: No
  Sender: ALKEM
  Company Number: FR-ALKEM LABORATORIES LIMITED-FR-ALKEM-2023-14236

PATIENT
  Sex: Male

DRUGS (3)
  1. DRONABINOL [Suspect]
     Active Substance: DRONABINOL
     Indication: Neuralgia
     Dosage: 7.5 MILLIGRAM, QD (2.5 MG IN THE MORNING AND 5 MG IN THE EVENING)
     Route: 065
  2. DRONABINOL [Suspect]
     Active Substance: DRONABINOL
     Dosage: UNK (CAPSULE MOLLE)
     Route: 065
  3. DRONABINOL [Suspect]
     Active Substance: DRONABINOL
     Dosage: 5 MILLIGRAM, BID (5 MG IN THE MORNING AND 5 MG IN THE EVENING), CAPSULE MOLLE
     Route: 065

REACTIONS (5)
  - Pain [Unknown]
  - Food craving [Not Recovered/Not Resolved]
  - Therapy interrupted [Unknown]
  - Headache [Not Recovered/Not Resolved]
  - Product supply issue [Unknown]
